FAERS Safety Report 22205802 (Version 3)
Quarter: 2023Q2

REPORT INFORMATION
  Report Type: Spontaneous
  Country: US (occurrence: US)
  Receive Date: 20230413
  Receipt Date: 20230513
  Transmission Date: 20230721
  Serious: No
  Sender: FDA-Public Use
  Company Number: US-AMGEN-USASP2023061788

PATIENT

DRUGS (1)
  1. IMLYGIC [Suspect]
     Active Substance: TALIMOGENE LAHERPAREPVEC
     Indication: Neoplasm
     Dosage: 4 MILLILITER, Q2WK
     Route: 065
     Dates: start: 20230310, end: 20230331

REACTIONS (2)
  - Cheilitis [Unknown]
  - Stomatitis [Unknown]

NARRATIVE: CASE EVENT DATE: 20230301
